FAERS Safety Report 8717558 (Version 2)
Quarter: 2012Q4

REPORT INFORMATION
  Report Type: 
  Country: US (occurrence: US)
  Receive Date: 20120810
  Receipt Date: 20120913
  Transmission Date: 20130627
  Serious: Yes (Death, Life-Threatening, Hospitalization, Other)
  Sender: FDA-Public Use
  Company Number: US-BAYER-2012-076181

PATIENT
  Age: 67 Year
  Sex: Male
  Weight: 88.98 kg

DRUGS (13)
  1. BAYER GENUINE ASPIRIN ORIGINAL STRENGTH [Suspect]
     Indication: ISCHAEMIC HEART DISEASE PROPHYLAXIS
     Dosage: Daily dose 80 mg
     Route: 048
     Dates: end: 20111105
  2. UNSPECIFIED INGREDIENT [Suspect]
     Indication: NON-SMALL CELL LUNG CANCER
     Dosage: 250 mg, BID
     Route: 048
     Dates: start: 20110603, end: 20111024
  3. LEVOTHYROXINE SODIUM [Concomitant]
     Indication: HYPOTHYROIDISM
     Dosage: 50 ?g, QD
     Route: 048
     Dates: end: 20111105
  4. POTASSIUM CHLORIDE [Concomitant]
     Indication: SUPPLEMENTATION THERAPY
     Dosage: 20 mEq, QD
     Route: 048
     Dates: end: 20111105
  5. ZETIA [Concomitant]
     Indication: HYPERLIPIDAEMIA
     Dosage: 10 mg, QD
     Route: 048
     Dates: end: 20111105
  6. ZOCOR [Concomitant]
     Indication: HYPERLIPIDAEMIA
     Dosage: 40 mg, QD
     Route: 048
     Dates: end: 20111105
  7. COREG [Concomitant]
     Indication: HYPERTENSION
     Dosage: 3.125 mg, QD
     Route: 048
     Dates: end: 20111010
  8. LASIX [Concomitant]
     Indication: HYPERTENSION
     Dosage: UNK
     Route: 048
     Dates: end: 20111105
  9. FLUZONE [Concomitant]
     Indication: INFLUENZA IMMUNISATION
     Dosage: 1 DF, UNK
     Route: 058
     Dates: start: 20111005, end: 20111005
  10. BENZONATATE [Concomitant]
     Indication: COUGH
     Dosage: 100 mg, PRN
     Route: 048
     Dates: end: 20111105
  11. VANCOMYCIN HCL [Concomitant]
     Dosage: 1750 mg, ONCE
     Dates: start: 20111015, end: 20111015
  12. LEVOFLOXACIN [Concomitant]
     Dosage: 750 mg, D5W 150
     Dates: start: 20111015, end: 20111018
  13. MEROPENEM [Concomitant]
     Dosage: 1 g in 50 ml
     Dates: start: 20111015, end: 20111019

REACTIONS (19)
  - Non-small cell lung cancer [Fatal]
  - Orthostatic hypotension [Recovering/Resolving]
  - Ileus [Recovering/Resolving]
  - Constipation [Recovering/Resolving]
  - Failure to thrive [None]
  - Syncope [Recovering/Resolving]
  - Dizziness postural [Recovering/Resolving]
  - Dizziness [Recovering/Resolving]
  - Fall [None]
  - Loss of consciousness [None]
  - Dyspnoea [None]
  - Toxic neuropathy [None]
  - Gait disturbance [Recovering/Resolving]
  - Oedema peripheral [None]
  - Localised oedema [None]
  - Abdominal pain [None]
  - Nausea [None]
  - Weight decreased [None]
  - Fatigue [None]
